FAERS Safety Report 8016524-4 (Version None)
Quarter: 2011Q4

REPORT INFORMATION
  Report Type: 
  Country: None (occurrence: None)
  Receive Date: 20111230
  Receipt Date: 20080818
  Transmission Date: 20120403
  Serious: Yes (Other)
  Sender: FDA-Public Use
  Company Number: PHHY2008IE043846

PATIENT
  Sex: Male

DRUGS (2)
  1. CLOZARIL [Suspect]
     Dosage: UNK
  2. CLOZARIL [Suspect]
     Dosage: UNK
     Dates: start: 20080724, end: 20080814

REACTIONS (5)
  - HYPOTENSION [None]
  - CHEST DISCOMFORT [None]
  - PYREXIA [None]
  - RESPIRATORY TRACT INFECTION [None]
  - ASTHENIA [None]
